FAERS Safety Report 9275679 (Version 3)
Quarter: 2013Q2

REPORT INFORMATION
  Report Type: Spontaneous
  Country: FR (occurrence: FR)
  Receive Date: 20130507
  Receipt Date: 20130523
  Transmission Date: 20140414
  Serious: Yes (Hospitalization)
  Sender: FDA-Public Use
  Company Number: FR-VERTEX PHARMACEUTICALS INC-2013-005779

PATIENT
  Age: 52 Year
  Sex: Male

DRUGS (4)
  1. INCIVO [Suspect]
     Indication: HEPATITIS C RNA
     Dosage: 750 MG, TID
     Route: 048
     Dates: start: 20130101, end: 20130320
  2. INCIVO [Suspect]
     Indication: HEPATITIS C
  3. COPEGUS [Suspect]
     Indication: HEPATITIS C RNA
     Dosage: UNK
     Route: 048
  4. PEGASYS [Suspect]
     Indication: HEPATITIS C RNA
     Dosage: DOSAGE FORM: UNSPECIFIED
     Route: 058
     Dates: start: 2004

REACTIONS (4)
  - Oral disorder [Recovered/Resolved]
  - Rash erythematous [Recovered/Resolved]
  - Pruritus [Not Recovered/Not Resolved]
  - Off label use [Unknown]
